FAERS Safety Report 9388328 (Version 3)
Quarter: 2013Q3

REPORT INFORMATION
  Report Type: Spontaneous
  Country: US (occurrence: US)
  Receive Date: 20130708
  Receipt Date: 20130904
  Transmission Date: 20140515
  Serious: Yes (Other)
  Sender: FDA-Public Use
  Company Number: US-TEVA-416600USA

PATIENT
  Age: 19 Year
  Sex: Female
  Weight: 71.73 kg

DRUGS (2)
  1. PARAGARD 380A [Suspect]
     Indication: CONTRACEPTION
     Route: 015
     Dates: start: 20130604, end: 20130627
  2. PARAGARD 380A [Suspect]
     Route: 015
     Dates: start: 20130627

REACTIONS (2)
  - Device dislocation [Recovered/Resolved]
  - Medical device complication [Recovered/Resolved]
